FAERS Safety Report 15320919 (Version 1)
Quarter: 2018Q3

REPORT INFORMATION
  Report Type: Spontaneous
  Country: IT (occurrence: IT)
  Receive Date: 20180827
  Receipt Date: 20180827
  Transmission Date: 20181010
  Serious: Yes (Other)
  Sender: FDA-Public Use
  Company Number: IT-PFIZER INC-2018341432

PATIENT
  Age: 63 Year
  Sex: Female

DRUGS (5)
  1. METHOTREXATE SODIUM. [Suspect]
     Active Substance: METHOTREXATE SODIUM
     Indication: PSORIATIC ARTHROPATHY
     Dosage: 15 MG, WEEKLY
     Route: 058
     Dates: start: 20160427, end: 20180719
  2. LANSOPRAZOLE. [Concomitant]
     Active Substance: LANSOPRAZOLE
     Dosage: UNK
  3. FOLINA [FOLIC ACID] [Concomitant]
     Dosage: UNK
  4. DIBASE [Concomitant]
     Active Substance: CHOLECALCIFEROL
     Dosage: UNK
  5. CIPRALEX [ESCITALOPRAM] [Concomitant]
     Dosage: UNK

REACTIONS (1)
  - Urinary bladder polyp [Not Recovered/Not Resolved]

NARRATIVE: CASE EVENT DATE: 20180719
